FAERS Safety Report 5850768-2 (Version None)
Quarter: 2008Q3

REPORT INFORMATION
  Report Type: 
  Country: None (occurrence: None)
  Receive Date: 20080820
  Receipt Date: 20080814
  Transmission Date: 20090109
  Serious: Yes (Death)
  Sender: FDA-Public Use
  Company Number: GB-AVENTIS-200814326EU

PATIENT
  Age: 84 Year
  Sex: Female

DRUGS (5)
  1. ENOXAPARIN SODIUM [Suspect]
     Indication: PULMONARY EMBOLISM
     Route: 058
     Dates: start: 20080408, end: 20080414
  2. AMLODIPINE [Concomitant]
     Indication: HYPERTENSION
     Route: 048
  3. CANDESARTAN [Concomitant]
     Indication: HYPERTENSION
     Route: 048
  4. CO-CODAMOL [Concomitant]
     Route: 048
  5. UNKNOWN DRUG [Concomitant]
     Route: 061

REACTIONS (1)
  - LOWER RESPIRATORY TRACT INFECTION [None]
